FAERS Safety Report 16051164 (Version 5)
Quarter: 2020Q1

REPORT INFORMATION
  Report Type: Spontaneous
  Country: JP (occurrence: JP)
  Receive Date: 20190308
  Receipt Date: 20200323
  Transmission Date: 20200409
  Serious: Yes (Hospitalization, Other)
  Sender: FDA-Public Use
  Company Number: JP-GLAXOSMITHKLINE-JP2019JPN038391

PATIENT
  Age: 54 Year
  Sex: Female
  Weight: 30 kg

DRUGS (5)
  1. BENLYSTA [Suspect]
     Active Substance: BELIMUMAB
     Dosage: UNK
     Route: 041
     Dates: start: 201902, end: 201902
  2. BENLYSTA [Suspect]
     Active Substance: BELIMUMAB
     Indication: SYSTEMIC LUPUS ERYTHEMATOSUS
     Dosage: UNK
     Route: 041
     Dates: start: 20190128, end: 20190128
  3. BENLYSTA [Suspect]
     Active Substance: BELIMUMAB
     Dosage: 4 MG/KG
     Route: 041
     Dates: start: 2019
  4. PREDONINE [Concomitant]
     Active Substance: PREDNISOLONE
     Dosage: UNK
  5. BENLYSTA [Suspect]
     Active Substance: BELIMUMAB
     Dosage: 1 MG/KG
     Route: 041

REACTIONS (4)
  - Off label use [Unknown]
  - Prescribed underdose [Unknown]
  - Pneumocystis jirovecii pneumonia [Recovered/Resolved]
  - Bacterial infection [Unknown]

NARRATIVE: CASE EVENT DATE: 20190226
